FAERS Safety Report 9499902 (Version 1)
Quarter: 2013Q1

REPORT INFORMATION
  Report Type: Spontaneous
  Country: US (occurrence: None)
  Receive Date: 20130118
  Receipt Date: 20130118
  Transmission Date: 20140127
  Serious: No
  Sender: FDA-Public Use
  Company Number: A-US2012-62704

PATIENT
  Age: 70 Year
  Sex: Male

DRUGS (3)
  1. TRACLEER [Suspect]
     Indication: PULMONARY ARTERIAL HYPERTENSION
     Route: 048
     Dates: start: 20111228, end: 20120315
  2. REVATIO (SILDENAFIL CITRATE) (UNKNOWN) (SILDENAFIL) [Concomitant]
  3. ADCIRCA (TADALAFIL) [Concomitant]

REACTIONS (12)
  - Liver injury [None]
  - Hypersensitivity [None]
  - Fluid retention [None]
  - Oropharyngeal pain [None]
  - Weight decreased [None]
  - Nausea [None]
  - Vomiting [None]
  - Joint swelling [None]
  - Abdominal distension [None]
  - Aspartate aminotransferase increased [None]
  - Blood alkaline phosphatase increased [None]
  - Blood bilirubin decreased [None]
